FAERS Safety Report 19794958 (Version 6)
Quarter: 2021Q4

REPORT INFORMATION
  Report Type: Spontaneous
  Country: US (occurrence: US)
  Receive Date: 20210907
  Receipt Date: 20211007
  Transmission Date: 20220303
  Serious: Yes (Hospitalization, Other)
  Sender: FDA-Public Use
  Company Number: US-UNITED THERAPEUTICS-UNT-2021-015445

PATIENT
  Age: 59 Year
  Sex: Female
  Weight: 51.7 kg

DRUGS (6)
  1. REMODULIN [Suspect]
     Active Substance: TREPROSTINIL
     Indication: Pulmonary arterial hypertension
     Dosage: UNK, CONTINUING
     Route: 058
     Dates: start: 20191018
  2. REMODULIN [Suspect]
     Active Substance: TREPROSTINIL
     Dosage: 0.080 ?G/KG, CONTINUING
     Route: 058
  3. TADALAFIL [Suspect]
     Active Substance: TADALAFIL
     Indication: Product used for unknown indication
     Dosage: UNK
     Route: 065
     Dates: start: 2021
  4. ELIQUIS [Suspect]
     Active Substance: APIXABAN
     Indication: Product used for unknown indication
     Dosage: UNK
     Route: 065
  5. OPSUMIT [Concomitant]
     Active Substance: MACITENTAN
     Indication: Product used for unknown indication
     Dosage: UNK
     Route: 065
  6. DILTIAZEM [Concomitant]
     Active Substance: DILTIAZEM
     Indication: Product used for unknown indication
     Dosage: UNK
     Route: 065

REACTIONS (6)
  - Gastrointestinal haemorrhage [Unknown]
  - Melaena [Unknown]
  - Full blood count abnormal [Unknown]
  - Dizziness [Unknown]
  - Asthenia [Unknown]
  - Hypotension [Unknown]

NARRATIVE: CASE EVENT DATE: 20210801
